FAERS Safety Report 10873277 (Version 1)
Quarter: 2015Q1

REPORT INFORMATION
  Report Type: Spontaneous
  Country: US (occurrence: US)
  Receive Date: 20150227
  Receipt Date: 20150227
  Transmission Date: 20150721
  Serious: Yes (Other)
  Sender: FDA-Public Use
  Company Number: US-AUROBINDO-AUR-APL-2015-01609

PATIENT
  Age: 4 Month
  Sex: Male

DRUGS (1)
  1. OXYCODONE [Suspect]
     Active Substance: OXYCODONE
     Indication: CRANIOSYNOSTOSIS
     Dosage: 1.2 MG, HIGH DOSE
     Route: 065

REACTIONS (4)
  - Respiratory depression [Recovering/Resolving]
  - Cyanosis [Unknown]
  - Overdose [Unknown]
  - Apnoea [Unknown]
